FAERS Safety Report 24160044 (Version 1)
Quarter: 2024Q3

REPORT INFORMATION
  Report Type: Spontaneous
  Country: ID (occurrence: ID)
  Receive Date: 20240801
  Receipt Date: 20240801
  Transmission Date: 20241017
  Serious: Yes (Other)
  Sender: STRIDES
  Company Number: ID-STRIDES ARCOLAB LIMITED-2024SP009398

PATIENT
  Age: 29 Year
  Sex: Male

DRUGS (17)
  1. TACROLIMUS [Interacting]
     Active Substance: TACROLIMUS
     Indication: Immunosuppression
     Dosage: 0.06 MILLIGRAM/KILOGRAM
     Route: 065
     Dates: start: 2022
  2. TACROLIMUS [Interacting]
     Active Substance: TACROLIMUS
     Indication: Renal transplant
     Dosage: 4 MILLIGRAM, QD
     Route: 065
  3. PREDNISOLONE [Interacting]
     Active Substance: PREDNISOLONE
     Indication: Immunosuppression
     Dosage: 5 MILLIGRAM, QD
     Route: 065
     Dates: start: 2022
  4. PREDNISOLONE [Interacting]
     Active Substance: PREDNISOLONE
     Indication: Renal transplant
  5. MYCOPHENOLIC ACID [Interacting]
     Active Substance: MYCOPHENOLIC ACID
     Indication: Immunosuppression
     Dosage: 720 MILLIGRAM
     Route: 065
     Dates: start: 2022
  6. MYCOPHENOLIC ACID [Interacting]
     Active Substance: MYCOPHENOLIC ACID
     Indication: Renal transplant
     Dosage: 360 MILLIGRAM, BID
     Route: 065
  7. ISONIAZID [Interacting]
     Active Substance: ISONIAZID
     Indication: Antibiotic prophylaxis
     Dosage: 300 MILLIGRAM, QD
     Route: 065
  8. ISONIAZID [Interacting]
     Active Substance: ISONIAZID
     Indication: Pulmonary tuberculosis
     Dosage: 400 MILLIGRAM, QD
     Route: 065
  9. MOXIFLOXACIN [Interacting]
     Active Substance: MOXIFLOXACIN
     Indication: Pulmonary tuberculosis
     Dosage: 400 MILLIGRAM, QD
     Route: 065
  10. RIFAMPIN [Interacting]
     Active Substance: RIFAMPIN
     Indication: Pulmonary tuberculosis
     Dosage: 225 MILLIGRAM, QD
     Route: 065
  11. CANDESARTAN [Suspect]
     Active Substance: CANDESARTAN
     Indication: Hypertensive heart disease
     Dosage: UNK
     Route: 065
  12. NIFEDIPINE [Suspect]
     Active Substance: NIFEDIPINE
     Indication: Hypertensive heart disease
     Dosage: UNK
     Route: 065
  13. ISOSORBIDE DINITRATE [Suspect]
     Active Substance: ISOSORBIDE DINITRATE
     Indication: Hypertensive heart disease
     Dosage: UNK
     Route: 065
  14. BASILIXIMAB [Suspect]
     Active Substance: BASILIXIMAB
     Indication: Immunosuppression
     Dosage: UNK
     Route: 065
  15. BASILIXIMAB [Suspect]
     Active Substance: BASILIXIMAB
     Indication: Renal transplant
  16. METHYLPREDNISOLONE [Suspect]
     Active Substance: METHYLPREDNISOLONE
     Indication: Immunosuppression
     Dosage: UNK
     Route: 065
  17. METHYLPREDNISOLONE [Suspect]
     Active Substance: METHYLPREDNISOLONE
     Indication: Renal transplant

REACTIONS (4)
  - Retinopathy [Unknown]
  - Pulmonary tuberculosis [Unknown]
  - Immunosuppressant drug level decreased [Unknown]
  - Drug interaction [Unknown]
